FAERS Safety Report 8756205 (Version 1)
Quarter: 2012Q4

REPORT INFORMATION
  Report Type: 
  Country: NL (occurrence: NL)
  Receive Date: 20120828
  Receipt Date: 20120828
  Transmission Date: 20130627
  Serious: Yes (Death, Other)
  Sender: FDA-Public Use
  Company Number: PHHY2012NL073767

PATIENT
  Age: 78 Year
  Sex: Male

DRUGS (4)
  1. ZOMETA [Suspect]
     Indication: PROSTATE CANCER METASTATIC
     Dosage: 4 mg/100 ml once per 28 days
  2. ZOMETA [Suspect]
     Dosage: 4 mg/100 ml once per 28 days
     Dates: start: 20110705
  3. ZOMETA [Suspect]
     Dosage: 4 mg/100 ml once per 28 days
     Dates: start: 20120720
  4. ZOMETA [Suspect]
     Dosage: 4 mg/100 ml once per 28 days
     Dates: start: 20120814

REACTIONS (3)
  - Death [Fatal]
  - Neoplasm progression [Unknown]
  - Malignant neoplasm progression [Unknown]
